FAERS Safety Report 4677984-X (Version None)
Quarter: 2005Q2

REPORT INFORMATION
  Report Type: 
  Country: None (occurrence: None)
  Receive Date: 20050531
  Receipt Date: 20050516
  Transmission Date: 20051028
  Serious: Yes (Other)
  Sender: FDA-Public Use
  Company Number: 2005GB00955

PATIENT
  Sex: Male

DRUGS (3)
  1. ATENOLOL [Suspect]
     Route: 048
  2. CARDURA [Suspect]
     Route: 048
  3. ISTIN [Suspect]
     Route: 048

REACTIONS (2)
  - BLOOD PRESSURE INCREASED [None]
  - HYPOKALAEMIA [None]
